FAERS Safety Report 11078189 (Version 4)
Quarter: 2017Q2

REPORT INFORMATION
  Report Type: Spontaneous
  Country: US (occurrence: US)
  Receive Date: 20150430
  Receipt Date: 20170607
  Transmission Date: 20170829
  Serious: Yes (Other)
  Sender: FDA-Public Use
  Company Number: US-JNJFOC-20150414694

PATIENT
  Sex: Male

DRUGS (2)
  1. RISPERDAL [Suspect]
     Active Substance: RISPERIDONE
     Indication: ATTENTION DEFICIT/HYPERACTIVITY DISORDER
     Route: 048
     Dates: start: 2005, end: 2015
  2. RISPERIDONE. [Suspect]
     Active Substance: RISPERIDONE
     Indication: PRODUCT USED FOR UNKNOWN INDICATION
     Route: 048

REACTIONS (5)
  - Product use in unapproved indication [Unknown]
  - Abnormal behaviour [Unknown]
  - Abnormal weight gain [Unknown]
  - Gynaecomastia [Unknown]
  - Off label use [Unknown]

NARRATIVE: CASE EVENT DATE: 2005
